FAERS Safety Report 19815177 (Version 2)
Quarter: 2021Q3

REPORT INFORMATION
  Report Type: Spontaneous
  Country: PR (occurrence: PR)
  Receive Date: 20210910
  Receipt Date: 20210913
  Transmission Date: 20211014
  Serious: No
  Sender: FDA-Public Use
  Company Number: PR-PFIZER INC-202101041726

PATIENT
  Age: 16 Year
  Sex: Female

DRUGS (1)
  1. GENOTROPIN [Suspect]
     Active Substance: SOMATROPIN
     Dosage: 1.4 MG
     Dates: start: 202108

REACTIONS (2)
  - Drug dose omission by device [Unknown]
  - Device breakage [Unknown]
